FAERS Safety Report 16259735 (Version 1)
Quarter: 2019Q2

REPORT INFORMATION
  Report Type: Report from Study
  Country: US (occurrence: US)
  Receive Date: 20190501
  Receipt Date: 20190501
  Transmission Date: 20190711
  Serious: Yes (Other)
  Sender: FDA-Public Use
  Company Number: US-MYLANLABS-2019M1027339

PATIENT
  Sex: Female
  Weight: 45 kg

DRUGS (2)
  1. LISINOPRIL. [Concomitant]
     Active Substance: LISINOPRIL
     Dosage: UNK
  2. GLATIRAMER ACETATE INJECTION [Suspect]
     Active Substance: GLATIRAMER ACETATE
     Indication: MULTIPLE SCLEROSIS
     Dosage: 40 MILLIGRAM, 3XW
     Route: 058

REACTIONS (8)
  - Speech disorder [Unknown]
  - Product use issue [Unknown]
  - Multiple sclerosis relapse [Unknown]
  - Injection site pain [Unknown]
  - Gait disturbance [Unknown]
  - Weight decreased [Unknown]
  - Drug ineffective [Unknown]
  - Therapy cessation [Unknown]
